FAERS Safety Report 5292647-8 (Version None)
Quarter: 2007Q2

REPORT INFORMATION
  Report Type: 
  Country: None (occurrence: None)
  Receive Date: 20070404
  Receipt Date: 20070323
  Transmission Date: 20071010
  Serious: Yes (Other)
  Sender: FDA-Public Use
  Company Number: 2007EU000692

PATIENT
  Age: 59 Year
  Sex: Female

DRUGS (4)
  1. VESICARE [Suspect]
     Indication: MICTURITION URGENCY
     Dosage: 5 MG, ORAL
     Route: 048
     Dates: start: 20070201, end: 20070215
  2. LEVOTHYROXINE SODIUM [Concomitant]
  3. SIMVASTATIN [Concomitant]
  4. TRAMADOL HCL [Concomitant]

REACTIONS (1)
  - MUSCLE SPASMS [None]
